FAERS Safety Report 8509036-2 (Version None)
Quarter: 2012Q3

REPORT INFORMATION
  Report Type: 
  Country: None (occurrence: None)
  Receive Date: 20120713
  Receipt Date: 20120702
  Transmission Date: 20120928
  Serious: Yes (Death)
  Sender: FDA-Public Use
  Company Number: JP-AMGEN-JPNCT2012043049

PATIENT
  Age: 82 Year
  Sex: Male

DRUGS (8)
  1. DARBEPOETIN ALFA - KHK [Suspect]
     Indication: NEPHROGENIC ANAEMIA
     Dosage: 20 MUG, QWK
     Route: 040
     Dates: start: 20111027, end: 20111117
  2. DARBEPOETIN ALFA - KHK [Suspect]
     Dosage: 30 MUG, QWK
     Route: 040
     Dates: start: 20111124, end: 20120209
  3. DARBEPOETIN ALFA - KHK [Suspect]
     Dosage: 20 MUG, QWK
     Route: 040
     Dates: start: 20120216, end: 20120329
  4. SIGMART [Concomitant]
     Dosage: UNK
     Route: 048
  5. ATELEC [Concomitant]
     Dosage: UNK
     Route: 048
  6. RABEPRAZOLE SODIUM [Concomitant]
     Dosage: UNK
     Route: 048
  7. ASPIRIN [Concomitant]
     Dosage: UNK
     Route: 048
  8. ISOSORBIDE MONONITRATE [Concomitant]
     Dosage: UNK
     Route: 048

REACTIONS (1)
  - CEREBRAL INFARCTION [None]
